FAERS Safety Report 23810637 (Version 3)
Quarter: 2024Q2

REPORT INFORMATION
  Report Type: Report from Study
  Country: BE (occurrence: BE)
  Receive Date: 20240502
  Receipt Date: 20240624
  Transmission Date: 20240716
  Serious: Yes (Other)
  Sender: FDA-Public Use
  Company Number: BE-BEH-2024169523

PATIENT
  Age: 64 Year
  Sex: Female

DRUGS (8)
  1. HAEMATE P [Suspect]
     Active Substance: ANTIHEMOPHILIC FACTOR HUMAN
     Indication: Von Willebrand^s disease
     Dosage: 1.00 X PER DAY
     Route: 042
     Dates: start: 20180207
  2. HAEMATE P [Suspect]
     Active Substance: ANTIHEMOPHILIC FACTOR HUMAN
     Indication: Epistaxis
     Dosage: 3000 INTERNATIONAL UNIT (1.00 X PER DAY)
     Route: 042
  3. HAEMATE P [Suspect]
     Active Substance: ANTIHEMOPHILIC FACTOR HUMAN
     Indication: Traumatic haematoma
     Dosage: 1.00 X PER DAY
     Route: 042
  4. HAEMATE P [Suspect]
     Active Substance: ANTIHEMOPHILIC FACTOR HUMAN
     Indication: Haemorrhage
     Dosage: 3X 2400/1000IU, PRN
     Route: 042
     Dates: start: 20240420, end: 20240420
  5. HAEMATE P [Suspect]
     Active Substance: ANTIHEMOPHILIC FACTOR HUMAN
     Dosage: 1X 2400/1000IU, QD
     Route: 042
     Dates: start: 20240421, end: 20240424
  6. HAEMATE P [Suspect]
     Active Substance: ANTIHEMOPHILIC FACTOR HUMAN
     Dosage: UNK
     Route: 042
     Dates: start: 20240304
  7. HAEMATE P [Suspect]
     Active Substance: ANTIHEMOPHILIC FACTOR HUMAN
     Dosage: 3000 INTERNATIONAL UNIT (1.00 X PER DAY)
     Route: 042
  8. HAEMATE P [Suspect]
     Active Substance: ANTIHEMOPHILIC FACTOR HUMAN
     Dosage: 3000 IU A DAY IN CASE OF BLEEDING
     Route: 042
     Dates: start: 20231222

REACTIONS (4)
  - Traumatic haematoma [Recovered/Resolved]
  - Sneezing [Recovered/Resolved]
  - Fall [Recovered/Resolved]
  - Traumatic haemorrhage [Recovered/Resolved]

NARRATIVE: CASE EVENT DATE: 20240419
